FAERS Safety Report 16206908 (Version 10)
Quarter: 2019Q3

REPORT INFORMATION
  Report Type: Report from Study
  Country: US (occurrence: US)
  Receive Date: 20190417
  Receipt Date: 20190801
  Transmission Date: 20191004
  Serious: Yes (Other)
  Sender: FDA-Public Use
  Company Number: US-TESARO-2019-TSO01463-US

PATIENT
  Age: 71 Year
  Sex: Female

DRUGS (5)
  1. ZEJULA [Suspect]
     Active Substance: NIRAPARIB
     Indication: OVARIAN CANCER
     Dosage: 300 MG, UNK
  2. ZEJULA [Suspect]
     Active Substance: NIRAPARIB
     Dosage: 100 MG, QD AM WITH OR WITHOUT FOOD
     Dates: start: 20190704
  3. GABAPENTIN. [Concomitant]
     Active Substance: GABAPENTIN
     Indication: PRODUCT USED FOR UNKNOWN INDICATION
     Dosage: 600 MG, HS
  4. ZEJULA [Suspect]
     Active Substance: NIRAPARIB
     Dosage: 200 MG, QPM WITHOUT FOOD
     Route: 048
     Dates: start: 20190322
  5. ZEJULA [Suspect]
     Active Substance: NIRAPARIB
     Dosage: 100 MG, DAILY
     Dates: start: 201905, end: 20190603

REACTIONS (21)
  - Nausea [Not Recovered/Not Resolved]
  - Nervousness [Unknown]
  - Urinary tract infection [Recovered/Resolved]
  - Red blood cell count decreased [Not Recovered/Not Resolved]
  - Glucose urine present [Unknown]
  - Seasonal allergy [Unknown]
  - Full blood count decreased [Unknown]
  - Insomnia [Not Recovered/Not Resolved]
  - Neuropathy peripheral [Unknown]
  - Memory impairment [Unknown]
  - Glycosylated haemoglobin increased [Unknown]
  - Somnolence [Unknown]
  - Constipation [Not Recovered/Not Resolved]
  - Dyspnoea [Recovering/Resolving]
  - Confusional state [Unknown]
  - Feeling abnormal [Unknown]
  - Rhinorrhoea [Unknown]
  - Alopecia [Unknown]
  - Laboratory test abnormal [Unknown]
  - Fatigue [Recovering/Resolving]
  - Back pain [Unknown]

NARRATIVE: CASE EVENT DATE: 20190325
